FAERS Safety Report 11751748 (Version 1)
Quarter: 2015Q4

REPORT INFORMATION
  Report Type: Spontaneous
  Country: US (occurrence: US)
  Receive Date: 20151118
  Receipt Date: 20151118
  Transmission Date: 20160304
  Serious: No
  Sender: FDA-Public Use
  Company Number: US-MYLANLABS-2015M1016727

PATIENT
  Age: 68 Year
  Sex: Male
  Weight: 74 kg

DRUGS (2)
  1. AMIODARONE HYDROCHLORIDE INJECTION, 50MG/ML [Suspect]
     Active Substance: AMIODARONE HYDROCHLORIDE
     Dosage: 0.5 MG/MIN
     Dates: start: 20150516, end: 20150518
  2. AMIODARONE HYDROCHLORIDE INJECTION, 50MG/ML [Suspect]
     Active Substance: AMIODARONE HYDROCHLORIDE
     Indication: ARRHYTHMIA
     Dosage: 1 MG/MIN, FOR 6 HOURS
     Route: 042
     Dates: start: 20150516, end: 20150518

REACTIONS (2)
  - Infusion site extravasation [Recovering/Resolving]
  - Infusion site erythema [Recovering/Resolving]

NARRATIVE: CASE EVENT DATE: 201505
